FAERS Safety Report 4984196-9 (Version None)
Quarter: 2006Q2

REPORT INFORMATION
  Report Type: 
  Country: None (occurrence: None)
  Receive Date: 20060420
  Receipt Date: 20060407
  Transmission Date: 20061013
  Serious: Yes (Hospitalization)
  Sender: FDA-Public Use
  Company Number: 2006049290

PATIENT
  Age: 71 Year
  Sex: Female
  Weight: 78.6 kg

DRUGS (6)
  1. SUTENT [Suspect]
     Indication: RENAL CELL CARCINOMA STAGE UNSPECIFIED
     Dosage: 25 MG (25 MG, EVERY DAY), ORAL
     Route: 048
     Dates: start: 20060109
  2. GLUCOPHAGE [Concomitant]
  3. TENORMIN [Concomitant]
  4. ZOCOR [Concomitant]
  5. LOPERAMIDE [Concomitant]
  6. PASPERTIN (METOCLOPRAMIDE HYDROCHLORIDE) [Concomitant]

REACTIONS (2)
  - ANURIA [None]
  - BLOOD CREATINE INCREASED [None]
